FAERS Safety Report 7279805-8 (Version None)
Quarter: 2011Q1

REPORT INFORMATION
  Report Type: 
  Country: None (occurrence: None)
  Receive Date: 20110203
  Receipt Date: 20110203
  Transmission Date: 20110831
  Serious: No
  Sender: FDA-Public Use
  Company Number: None

PATIENT
  Age: 53 Year
  Sex: Female

DRUGS (2)
  1. PRISTIQ [Suspect]
     Indication: DEPRESSION
     Dosage: 50MG BY MOUTH DAILY
     Dates: start: 20110101, end: 20110131
  2. PRISTIQ [Suspect]
     Indication: FIBROMYALGIA
     Dosage: 50MG BY MOUTH DAILY
     Dates: start: 20110101, end: 20110131

REACTIONS (6)
  - HOT FLUSH [None]
  - FIBROMYALGIA [None]
  - DEPRESSION [None]
  - MUSCULOSKELETAL STIFFNESS [None]
  - PRODUCT FORMULATION ISSUE [None]
  - NIGHTMARE [None]
